FAERS Safety Report 4736690-3 (Version None)
Quarter: 2005Q3

REPORT INFORMATION
  Report Type: 
  Country: None (occurrence: None)
  Receive Date: 20050804
  Receipt Date: 20050720
  Transmission Date: 20060218
  Serious: Yes (Hospitalization)
  Sender: FDA-Public Use
  Company Number: LOV-US-05-00204

PATIENT
  Age: 49 Year
  Sex: Female

DRUGS (5)
  1. ALTOPREV [Suspect]
     Dates: start: 20030401
  2. COREG [Concomitant]
  3. ALTACE [Concomitant]
  4. LASIX [Concomitant]
  5. TRICOR [Concomitant]

REACTIONS (6)
  - CARDIOMYOPATHY [None]
  - EJECTION FRACTION DECREASED [None]
  - ELECTROCARDIOGRAM ABNORMAL [None]
  - FATIGUE [None]
  - HEADACHE [None]
  - PAIN IN JAW [None]
